FAERS Safety Report 18308144 (Version 1)
Quarter: 2020Q3

REPORT INFORMATION
  Report Type: Spontaneous
  Country: PL (occurrence: PL)
  Receive Date: 20200924
  Receipt Date: 20200924
  Transmission Date: 20201103
  Serious: Yes (Other)
  Sender: FDA-Public Use
  Company Number: PL-AMGEN-POLSP2020150292

PATIENT
  Age: 66 Year
  Sex: Male

DRUGS (7)
  1. VECTIBIX [Suspect]
     Active Substance: PANITUMUMAB
     Indication: COLON CANCER METASTATIC
     Dosage: 6 MILLIGRAM/KILOGRAM, Q2WK, 1 HOURS INFUSIONS
     Route: 065
     Dates: start: 20200603
  2. LEVOFOLIC [Suspect]
     Active Substance: LEUCOVORIN
     Indication: COLON CANCER METASTATIC
     Dosage: 100 MILLIGRAM/SQ. METER, Q2WK, 2 HOUR INFUSION, DAY 1 AND 2
     Route: 042
  3. 5?FLUOROURACIL [FLUOROURACIL] [Suspect]
     Active Substance: FLUOROURACIL
     Dosage: DOSE REDUCED BY 20%, Q2WK
     Route: 065
     Dates: start: 2020
  4. OXALIPLATIN. [Suspect]
     Active Substance: OXALIPLATIN
     Dosage: DOSE REDUCED BY 20%, Q2WK
     Route: 042
     Dates: start: 2020
  5. 5?FLUOROURACIL [FLUOROURACIL] [Suspect]
     Active Substance: FLUOROURACIL
     Indication: COLON CANCER METASTATIC
     Dosage: 400 MG/M2 IV BOLUS, DAYS 1 ? 2, 600 MG/M2 IV ? 22?HOUR INFUSION, DAYS 1 ? 2, Q2WK
     Route: 040
     Dates: start: 20200603
  6. VECTIBIX [Suspect]
     Active Substance: PANITUMUMAB
     Dosage: DOSE REDUCED BY 20%
     Route: 065
     Dates: start: 2020
  7. OXALIPLATIN. [Suspect]
     Active Substance: OXALIPLATIN
     Indication: COLON CANCER METASTATIC
     Dosage: 85 MILLIGRAM/SQ. METER, Q2WK, DAY 1
     Route: 042
     Dates: start: 20200603

REACTIONS (6)
  - Skin fissures [Recovering/Resolving]
  - Stomatitis [Recovered/Resolved]
  - Thrombocytopenia [Unknown]
  - Rash pustular [Recovering/Resolving]
  - Neutropenia [Unknown]
  - Asthenia [Recovered/Resolved]

NARRATIVE: CASE EVENT DATE: 2020
